FAERS Safety Report 18601868 (Version 1)
Quarter: 2020Q4

REPORT INFORMATION
  Report Type: Spontaneous
  Country: US (occurrence: US)
  Receive Date: 20201210
  Receipt Date: 20201210
  Transmission Date: 20210114
  Serious: No
  Sender: FDA-Public Use
  Company Number: US-TOLMAR, INC.-20US024221

PATIENT
  Age: 11 Year
  Sex: Female

DRUGS (1)
  1. FENSOLVI [Suspect]
     Active Substance: LEUPROLIDE ACETATE
     Indication: GENE MUTATION
     Dosage: UNK
     Route: 065

REACTIONS (4)
  - Underweight [Unknown]
  - Eating disorder [Unknown]
  - Delayed menarche [Unknown]
  - Off label use [Unknown]
